FAERS Safety Report 20832488 (Version 1)
Quarter: 2022Q2

REPORT INFORMATION
  Report Type: 
  Country: None (occurrence: None)
  Receive Date: 20220516
  Receipt Date: 20220516
  Transmission Date: 20220721
  Serious: No
  Sender: FDA-Public Use
  Company Number: JP-ROCHE-3086611

PATIENT
  Age: 54 Year
  Weight: 88 kg

DRUGS (79)
  1. RITUXIMAB [Suspect]
     Active Substance: RITUXIMAB
     Dates: start: 20211215, end: 20211215
  2. RITUXIMAB [Suspect]
     Active Substance: RITUXIMAB
     Dates: start: 20220105, end: 20220105
  3. RITUXIMAB [Suspect]
     Active Substance: RITUXIMAB
     Dates: start: 20220127, end: 20220127
  4. RITUXIMAB [Suspect]
     Active Substance: RITUXIMAB
     Dates: start: 20220217, end: 20220217
  5. RITUXIMAB [Suspect]
     Active Substance: RITUXIMAB
     Dates: start: 20220310, end: 20220310
  6. RITUXIMAB [Suspect]
     Active Substance: RITUXIMAB
     Dates: start: 20220331, end: 20220331
  7. CYCLOPHOSPHAMIDE [Suspect]
     Active Substance: CYCLOPHOSPHAMIDE
     Dates: start: 20211216, end: 20211216
  8. CYCLOPHOSPHAMIDE [Suspect]
     Active Substance: CYCLOPHOSPHAMIDE
     Dates: start: 20220106, end: 20220106
  9. CYCLOPHOSPHAMIDE [Suspect]
     Active Substance: CYCLOPHOSPHAMIDE
     Dates: start: 20220127, end: 20220127
  10. CYCLOPHOSPHAMIDE [Suspect]
     Active Substance: CYCLOPHOSPHAMIDE
     Dates: start: 20220217, end: 20220217
  11. CYCLOPHOSPHAMIDE [Suspect]
     Active Substance: CYCLOPHOSPHAMIDE
     Dates: start: 20220310, end: 20220310
  12. CYCLOPHOSPHAMIDE [Suspect]
     Active Substance: CYCLOPHOSPHAMIDE
     Dates: start: 20220331, end: 20220331
  13. DOXORUBICIN HYDROCHLORIDE [Suspect]
     Active Substance: DOXORUBICIN HYDROCHLORIDE
     Dates: start: 20211216, end: 20211216
  14. DOXORUBICIN HYDROCHLORIDE [Suspect]
     Active Substance: DOXORUBICIN HYDROCHLORIDE
     Dates: start: 20220106, end: 20220106
  15. DOXORUBICIN HYDROCHLORIDE [Suspect]
     Active Substance: DOXORUBICIN HYDROCHLORIDE
     Dates: start: 20220127, end: 20220127
  16. DOXORUBICIN HYDROCHLORIDE [Suspect]
     Active Substance: DOXORUBICIN HYDROCHLORIDE
     Dates: start: 20220217, end: 20220217
  17. DOXORUBICIN HYDROCHLORIDE [Suspect]
     Active Substance: DOXORUBICIN HYDROCHLORIDE
     Dates: start: 20220310, end: 20220310
  18. DOXORUBICIN HYDROCHLORIDE [Suspect]
     Active Substance: DOXORUBICIN HYDROCHLORIDE
     Dates: start: 20220331, end: 20220331
  19. VINCRISTINE [Suspect]
     Active Substance: VINCRISTINE
     Dates: start: 20211216, end: 20211216
  20. VINCRISTINE [Suspect]
     Active Substance: VINCRISTINE
     Dates: start: 20220106, end: 20220106
  21. VINCRISTINE [Suspect]
     Active Substance: VINCRISTINE
     Dates: start: 20220127, end: 20220127
  22. VINCRISTINE [Suspect]
     Active Substance: VINCRISTINE
     Dates: start: 20220310, end: 20220310
  23. VINCRISTINE [Suspect]
     Active Substance: VINCRISTINE
     Dates: start: 20220331, end: 20220331
  24. PREDNISOLONE [Suspect]
     Active Substance: PREDNISOLONE
     Dates: start: 20211215, end: 20211219
  25. PREDNISOLONE [Suspect]
     Active Substance: PREDNISOLONE
     Dates: start: 20220105, end: 20220109
  26. PREDNISOLONE [Suspect]
     Active Substance: PREDNISOLONE
     Dates: start: 20220127, end: 20220131
  27. PREDNISOLONE [Suspect]
     Active Substance: PREDNISOLONE
     Dates: start: 20220217, end: 20220221
  28. PREDNISOLONE [Suspect]
     Active Substance: PREDNISOLONE
     Dates: start: 20220310, end: 20220314
  29. PREDNISOLONE [Suspect]
     Active Substance: PREDNISOLONE
     Dates: start: 20220331, end: 20220404
  30. ACETAMINOPHEN [Concomitant]
     Active Substance: ACETAMINOPHEN
     Dates: start: 20211215
  31. ACETAMINOPHEN [Concomitant]
     Active Substance: ACETAMINOPHEN
     Dates: start: 20211222
  32. ACETAMINOPHEN [Concomitant]
     Active Substance: ACETAMINOPHEN
     Dates: start: 20220105, end: 20220105
  33. ACETAMINOPHEN [Concomitant]
     Active Substance: ACETAMINOPHEN
     Dates: start: 20220111, end: 20220111
  34. ACETAMINOPHEN [Concomitant]
     Active Substance: ACETAMINOPHEN
     Dates: start: 20220127, end: 20220127
  35. ACETAMINOPHEN [Concomitant]
     Active Substance: ACETAMINOPHEN
     Dates: start: 20220217, end: 20220217
  36. ACETAMINOPHEN [Concomitant]
     Active Substance: ACETAMINOPHEN
     Dates: start: 20220310, end: 20220310
  37. DIPHENHYDRAMINE HYDROCHLORIDE [Concomitant]
     Active Substance: DIPHENHYDRAMINE HYDROCHLORIDE
     Dates: start: 20211215, end: 20211215
  38. DIPHENHYDRAMINE HYDROCHLORIDE [Concomitant]
     Active Substance: DIPHENHYDRAMINE HYDROCHLORIDE
     Dates: start: 20220105, end: 20220105
  39. DIPHENHYDRAMINE HYDROCHLORIDE [Concomitant]
     Active Substance: DIPHENHYDRAMINE HYDROCHLORIDE
     Dates: start: 20220127, end: 20220127
  40. DIPHENHYDRAMINE HYDROCHLORIDE [Concomitant]
     Active Substance: DIPHENHYDRAMINE HYDROCHLORIDE
     Dates: start: 20220217, end: 20220217
  41. DIPHENHYDRAMINE HYDROCHLORIDE [Concomitant]
     Active Substance: DIPHENHYDRAMINE HYDROCHLORIDE
     Dates: start: 20220310, end: 20220310
  42. METFORMIN HYDROCHLORIDE [Concomitant]
     Active Substance: METFORMIN HYDROCHLORIDE
     Dates: start: 2012
  43. MITIGLINIDE CALCIUM ANHYDROUS [Concomitant]
     Active Substance: MITIGLINIDE CALCIUM ANHYDROUS
     Dates: start: 2012
  44. MITIGLINIDE CALCIUM ANHYDROUS [Concomitant]
     Active Substance: MITIGLINIDE CALCIUM ANHYDROUS
     Dates: start: 20220110
  45. MITIGLINIDE CALCIUM ANHYDROUS [Concomitant]
     Active Substance: MITIGLINIDE CALCIUM ANHYDROUS
     Dates: start: 20220201, end: 20220217
  46. MITIGLINIDE CALCIUM ANHYDROUS [Concomitant]
     Active Substance: MITIGLINIDE CALCIUM ANHYDROUS
     Dates: start: 20220222, end: 20220310
  47. MITIGLINIDE CALCIUM ANHYDROUS [Concomitant]
     Active Substance: MITIGLINIDE CALCIUM ANHYDROUS
     Dates: start: 20220315
  48. ALOGLIPTIN BENZOATE [Concomitant]
     Active Substance: ALOGLIPTIN BENZOATE
     Dates: start: 2012
  49. DAPAGLIFLOZIN PROPANEDIOL [Concomitant]
     Active Substance: DAPAGLIFLOZIN PROPANEDIOL
     Dates: end: 20220421
  50. DAPAGLIFLOZIN PROPANEDIOL [Concomitant]
     Active Substance: DAPAGLIFLOZIN PROPANEDIOL
     Dates: start: 2012
  51. ESOMEPRAZOLE MAGNESIUM [Concomitant]
     Active Substance: ESOMEPRAZOLE MAGNESIUM
  52. FEBUXOSTAT [Concomitant]
     Active Substance: FEBUXOSTAT
  53. PIOGLITAZONE HYDROCHLORIDE [Concomitant]
     Active Substance: PIOGLITAZONE HYDROCHLORIDE
     Dates: start: 2012
  54. FUROSEMIDE [Concomitant]
     Active Substance: FUROSEMIDE
     Dates: start: 20211215, end: 20211216
  55. FILGRASTIM [Concomitant]
     Active Substance: FILGRASTIM
     Dates: start: 20211218
  56. FILGRASTIM [Concomitant]
     Active Substance: FILGRASTIM
     Dates: start: 20220108, end: 20220117
  57. LULICONAZOLE [Concomitant]
     Active Substance: LULICONAZOLE
  58. GRANISETRON HYDROCHLORIDE [Concomitant]
     Active Substance: GRANISETRON HYDROCHLORIDE
     Dates: start: 20211216, end: 20211216
  59. GRANISETRON HYDROCHLORIDE [Concomitant]
     Active Substance: GRANISETRON HYDROCHLORIDE
     Dates: start: 20220106, end: 20220106
  60. GRANISETRON HYDROCHLORIDE [Concomitant]
     Active Substance: GRANISETRON HYDROCHLORIDE
     Dates: start: 20220127, end: 20220127
  61. SULFAMETHOXAZOLE\TRIMETHOPRIM [Concomitant]
     Active Substance: SULFAMETHOXAZOLE\TRIMETHOPRIM
     Dates: start: 20220107
  62. INSULIN ASPART [Concomitant]
     Active Substance: INSULIN ASPART
     Dates: start: 20220104
  63. INSULIN ASPART [Concomitant]
     Active Substance: INSULIN ASPART
     Dates: start: 20220127, end: 20220131
  64. INSULIN ASPART [Concomitant]
     Active Substance: INSULIN ASPART
     Dates: start: 20220217, end: 20220221
  65. INSULIN ASPART [Concomitant]
     Active Substance: INSULIN ASPART
     Dates: start: 20220310, end: 20220314
  66. INSULIN ASPART [Concomitant]
     Active Substance: INSULIN ASPART
     Dates: start: 20220421
  67. WHITE PETROLATUM [Concomitant]
     Active Substance: PETROLATUM
     Dates: start: 20220112
  68. PEGFILGRASTIM [Concomitant]
     Active Substance: PEGFILGRASTIM
     Dates: start: 20220128, end: 20220128
  69. PEGFILGRASTIM [Concomitant]
     Active Substance: PEGFILGRASTIM
     Dates: start: 20220316, end: 20220316
  70. FOSAPREPITANT [Concomitant]
     Active Substance: FOSAPREPITANT
     Dates: start: 20220217, end: 20220217
  71. FOSAPREPITANT [Concomitant]
     Active Substance: FOSAPREPITANT
     Dates: start: 20220310, end: 20220310
  72. FOSAPREPITANT [Concomitant]
     Active Substance: FOSAPREPITANT
     Dates: start: 20220331, end: 20220331
  73. PALONOSETRON HYDROCHLORIDE [Concomitant]
     Active Substance: PALONOSETRON HYDROCHLORIDE
     Dates: start: 20220217, end: 20220217
  74. PALONOSETRON HYDROCHLORIDE [Concomitant]
     Active Substance: PALONOSETRON HYDROCHLORIDE
     Dates: start: 20220331, end: 20220331
  75. NEXIUM [Concomitant]
     Active Substance: ESOMEPRAZOLE MAGNESIUM
     Dates: start: 2012
  76. FLUCONAZOLE [Concomitant]
     Active Substance: FLUCONAZOLE
     Dates: start: 20220310
  77. FEBUXOSTAT [Concomitant]
     Active Substance: FEBUXOSTAT
     Dates: start: 2012
  78. LEVOFLOXACIN HEMIHYDRATE [Concomitant]
     Active Substance: LEVOFLOXACIN
     Dates: start: 20220414
  79. EPINASTINE HYDROCHLORIDE [Concomitant]
     Active Substance: EPINASTINE HYDROCHLORIDE

REACTIONS (16)
  - COVID-19 pneumonia [None]
  - Bacteraemia [None]
  - Infusion related reaction [None]
  - Constipation [None]
  - Hyperglycaemia [None]
  - Back pain [None]
  - Nausea [None]
  - Neuropathy peripheral [None]
  - Diabetic nephropathy [None]
  - Coronavirus test positive [None]
  - Decreased appetite [None]
  - Pyrexia [None]
  - Neutropenia [None]
  - Hypogammaglobulinaemia [None]
  - Hyponatraemia [None]
  - Anaemia [None]

NARRATIVE: CASE EVENT DATE: 20211215
